FAERS Safety Report 15019352 (Version 3)
Quarter: 2018Q3

REPORT INFORMATION
  Report Type: Spontaneous
  Country: FR (occurrence: FR)
  Receive Date: 20180617
  Receipt Date: 20180810
  Transmission Date: 20181010
  Serious: Yes (Death)
  Sender: FDA-Public Use
  Company Number: PHHY2018FR019340

PATIENT
  Age: 39 Year
  Sex: Female
  Weight: 81 kg

DRUGS (6)
  1. SERESTA [Concomitant]
     Active Substance: OXAZEPAM
     Dosage: UNK
     Route: 065
  2. XARELTO [Suspect]
     Active Substance: RIVAROXABAN
     Indication: PULMONARY EMBOLISM
     Dosage: UNK
     Route: 048
  3. SERESTA [Concomitant]
     Active Substance: OXAZEPAM
     Indication: PRODUCT USED FOR UNKNOWN INDICATION
     Dosage: 10 MG, UNK
     Route: 065
  4. EXEMESTANE. [Suspect]
     Active Substance: EXEMESTANE
     Indication: BREAST CANCER METASTATIC
     Dosage: 25 MG, QD
     Route: 048
     Dates: start: 20171227, end: 20180606
  5. AFINITOR [Suspect]
     Active Substance: EVEROLIMUS
     Dosage: 10 MG, QD
     Route: 048
     Dates: start: 20171227, end: 20180606
  6. AFINITOR [Suspect]
     Active Substance: EVEROLIMUS
     Indication: BREAST CANCER METASTATIC
     Dosage: UNK
     Route: 065
     Dates: start: 20171027, end: 20180606

REACTIONS (8)
  - Hypovolaemic shock [Fatal]
  - Pulmonary embolism [Fatal]
  - Thrombocytopenia [Fatal]
  - Hepatitis [Fatal]
  - Liver function test abnormal [Unknown]
  - Lung infiltration [Unknown]
  - Shock haemorrhagic [Fatal]
  - Respiratory distress [Fatal]

NARRATIVE: CASE EVENT DATE: 20180604
